FAERS Safety Report 19187954 (Version 1)
Quarter: 2021Q2

REPORT INFORMATION
  Report Type: Spontaneous
  Country: GB (occurrence: GB)
  Receive Date: 20210427
  Receipt Date: 20210427
  Transmission Date: 20210717
  Serious: Yes (Life-Threatening, Hospitalization, Other)
  Sender: FDA-Public Use
  Company Number: GB-GLAXOSMITHKLINE-GB2021EME091403

PATIENT
  Age: 58 Year
  Sex: Female

DRUGS (5)
  1. NIRAPARIB [Suspect]
     Active Substance: NIRAPARIB
     Indication: OVARIAN CANCER STAGE IV
     Dosage: UNK
  2. NIRAPARIB [Suspect]
     Active Substance: NIRAPARIB
     Dosage: UNK
  3. CARBOPLATIN. [Concomitant]
     Active Substance: CARBOPLATIN
     Indication: OVARIAN CANCER STAGE IV
     Dosage: 6 CYCLES
  4. PACLITAXEL. [Concomitant]
     Active Substance: PACLITAXEL
     Indication: OVARIAN CANCER STAGE IV
     Dosage: 6 CYCLES
  5. PEGYLATED LIPOSOMAL DOXORUBICIN [Concomitant]
     Active Substance: DOXORUBICIN
     Indication: OVARIAN CANCER STAGE IV
     Dosage: 30 MG/M2

REACTIONS (11)
  - Thrombocytopenia [Recovered/Resolved]
  - Lung opacity [Recovered/Resolved]
  - C-reactive protein increased [Recovered/Resolved]
  - Sinus tachycardia [Recovered/Resolved]
  - Respiratory failure [Recovered/Resolved]
  - Pneumonitis [Recovered/Resolved]
  - Cough [Recovered/Resolved]
  - Pleuritic pain [Recovered/Resolved]
  - Rales [Recovered/Resolved]
  - Emphysema [Recovered/Resolved]
  - Dyspnoea exertional [Recovered/Resolved]
